FAERS Safety Report 4762026-8 (Version None)
Quarter: 2005Q3

REPORT INFORMATION
  Report Type: 
  Country: None (occurrence: None)
  Receive Date: 20050831
  Receipt Date: 20050520
  Transmission Date: 20060218
  Serious: No
  Sender: FDA-Public Use
  Company Number: PHEH2005US05792

PATIENT
  Age: 83 Year
  Sex: Male

DRUGS (1)
  1. ENABLEX [Suspect]
     Indication: DROOLING
     Dosage: 15 MG QHS
     Dates: start: 20050517, end: 20050518

REACTIONS (5)
  - DRUG INEFFECTIVE FOR UNAPPROVED INDICATION [None]
  - DRY MOUTH [None]
  - FEELING ABNORMAL [None]
  - INSOMNIA [None]
  - PHARYNGOLARYNGEAL PAIN [None]
